FAERS Safety Report 8850719 (Version 1)
Quarter: 2012Q4

REPORT INFORMATION
  Report Type: 
  Country: DE (occurrence: CA)
  Receive Date: 20121019
  Receipt Date: 20121019
  Transmission Date: 20130627
  Serious: Yes (Other)
  Sender: FDA-Public Use
  Company Number: CA-FRI-1000039555

PATIENT
  Age: 66 Year
  Sex: Male
  Weight: 109 kg

DRUGS (5)
  1. ROFLUMILAST [Suspect]
     Dosage: 250 mcg
     Dates: start: 20120704, end: 20120821
  2. VENTOLIN [Concomitant]
     Dosage: 2-3 times daily as required
  3. AZITHROMYCIN [Concomitant]
  4. SPIRIVA [Concomitant]
  5. SYMBICORT [Concomitant]
     Dosage: 4 puffs

REACTIONS (8)
  - Hallucination [Recovered/Resolved]
  - Personality change [Recovering/Resolving]
  - Depression [Unknown]
  - Suicidal ideation [Recovering/Resolving]
  - Anxiety [Unknown]
  - Insomnia [Recovered/Resolved]
  - Agitation [Recovering/Resolving]
  - Therapy regimen changed [Recovered/Resolved]
